FAERS Safety Report 11803612 (Version 3)
Quarter: 2016Q1

REPORT INFORMATION
  Report Type: Spontaneous
  Country: JP (occurrence: JP)
  Receive Date: 20151204
  Receipt Date: 20160115
  Transmission Date: 20160525
  Serious: Yes (Disabling, Other)
  Sender: FDA-Public Use
  Company Number: JP-009507513-1512JPN000510

PATIENT
  Age: 87 Year
  Sex: Female
  Weight: 55 kg

DRUGS (9)
  1. SUMITHRIN [Concomitant]
     Indication: ACARODERMATITIS
     Dosage: 30 G, QD
     Route: 061
     Dates: start: 20151102, end: 20151102
  2. EURAX [Concomitant]
     Active Substance: CROTAMITON
     Indication: ACARODERMATITIS
     Dosage: 10 G, QD
     Route: 061
     Dates: start: 20151102, end: 20151109
  3. LANZOPRAZOLE OD [Concomitant]
     Indication: GASTROOESOPHAGEAL REFLUX DISEASE
     Dosage: 15 MG, QD
     Route: 048
     Dates: start: 20150804
  4. STROMECTOL [Suspect]
     Active Substance: IVERMECTIN
     Indication: ACARODERMATITIS
     Dosage: 12 MG, QD
     Route: 048
     Dates: start: 20151102, end: 20151102
  5. AZOSEMIDE [Concomitant]
     Active Substance: AZOSEMIDE
     Dosage: 30 MG, QD
     Route: 048
  6. BISONO [Concomitant]
     Active Substance: BISOPROLOL
     Dosage: 4 MG, QD
     Route: 062
  7. SENNOSIDES. [Concomitant]
     Active Substance: SENNOSIDES
     Indication: CONSTIPATION
     Dosage: 12 MG, QD
     Route: 048
     Dates: start: 20151005
  8. MIYA-BM [Concomitant]
     Active Substance: CLOSTRIDIUM BUTYRICUM SPORES STRAIN M-55
     Indication: ENTEROCOLITIS
     Dosage: 2 DF (FORMULATION POR), TID
     Route: 048
     Dates: start: 20150930
  9. EXELON [Concomitant]
     Active Substance: RIVASTIGMINE TARTRATE
     Indication: DEMENTIA
     Dosage: 9 MG, QD
     Route: 062
     Dates: start: 20150520

REACTIONS (1)
  - Cerebral infarction [Not Recovered/Not Resolved]

NARRATIVE: CASE EVENT DATE: 20151103
